FAERS Safety Report 24559195 (Version 1)
Quarter: 2024Q4

REPORT INFORMATION
  Report Type: Spontaneous
  Country: US (occurrence: US)
  Receive Date: 20241029
  Receipt Date: 20241029
  Transmission Date: 20250114
  Serious: No
  Sender: BRISTOL-MYERS SQUIBB COMPANY
  Company Number: US-BRISTOL-MYERS SQUIBB COMPANY-2024-169305

PATIENT
  Sex: Female
  Weight: 79.38 kg

DRUGS (15)
  1. REVLIMID [Suspect]
     Active Substance: LENALIDOMIDE
     Indication: Plasma cell myeloma
     Dosage: FREQUENCY: 21/28
     Route: 048
     Dates: start: 20240830
  2. MONTELUKAST SODIUM [Concomitant]
     Active Substance: MONTELUKAST SODIUM
     Indication: Performance enhancing product use
     Dates: start: 20240719
  3. DIPHENHYDRAMINE HYDROCHLORIDE [Concomitant]
     Active Substance: DIPHENHYDRAMINE HYDROCHLORIDE
     Indication: Performance enhancing product use
     Dosage: UD
     Dates: start: 20240719
  4. ACETAMINOPHEN [Concomitant]
     Active Substance: ACETAMINOPHEN
     Indication: Performance enhancing product use
     Dosage: 10-325
     Dates: start: 20240719
  5. SODIUM CHLORIDE [Concomitant]
     Active Substance: SODIUM CHLORIDE
     Indication: Performance enhancing product use
     Dosage: 10 ML VIAL
     Dates: start: 20240719
  6. ACETAMINOPHEN [Concomitant]
     Active Substance: ACETAMINOPHEN
     Indication: Performance enhancing product use
     Dosage: UD
     Route: 048
     Dates: start: 20240719
  7. DEXAMETHASONE [Concomitant]
     Active Substance: DEXAMETHASONE
     Indication: Performance enhancing product use
     Route: 048
     Dates: start: 20231023
  8. PANTOPRAZOLE SODIUM [Concomitant]
     Active Substance: PANTOPRAZOLE SODIUM
     Indication: Performance enhancing product use
     Dosage: EC
     Dates: start: 20231023
  9. TAMOXIFEN CITRATE [Concomitant]
     Active Substance: TAMOXIFEN CITRATE
     Indication: Performance enhancing product use
     Dates: start: 20231023
  10. ROSUVASTATIN CALCIUM [Concomitant]
     Active Substance: ROSUVASTATIN CALCIUM
     Indication: Performance enhancing product use
     Dates: start: 20231023
  11. AMLODIPINE BESYLATE [Concomitant]
     Active Substance: AMLODIPINE BESYLATE
     Indication: Performance enhancing product use
     Dates: start: 20231023
  12. CHLORTHALIDONE [Concomitant]
     Active Substance: CHLORTHALIDONE
     Indication: Performance enhancing product use
     Dates: start: 20231023
  13. MELOXICAM [Concomitant]
     Active Substance: MELOXICAM
     Indication: Performance enhancing product use
     Dates: start: 20231023
  14. LOSARTAN POTASSIUM [Concomitant]
     Active Substance: LOSARTAN POTASSIUM
     Indication: Performance enhancing product use
     Dates: start: 20231023
  15. NOVOLIN 70/30 [Concomitant]
     Active Substance: INSULIN HUMAN
     Indication: Performance enhancing product use
     Dosage: 100 UNIT/ML
     Dates: start: 20231023

REACTIONS (1)
  - Constipation [Recovering/Resolving]
